FAERS Safety Report 15888950 (Version 3)
Quarter: 2021Q3

REPORT INFORMATION
  Report Type: Report from Study
  Country: FR (occurrence: FR)
  Receive Date: 20190130
  Receipt Date: 20210819
  Transmission Date: 20211014
  Serious: Yes (Hospitalization, Other)
  Sender: FDA-Public Use
  Company Number: FR-ASTELLAS-2019US002998

PATIENT
  Sex: Male
  Weight: 60 kg

DRUGS (2)
  1. TACROLIMUS. [Suspect]
     Active Substance: TACROLIMUS
     Route: 048
     Dates: start: 20180426, end: 20180430
  2. TACROLIMUS. [Suspect]
     Active Substance: TACROLIMUS
     Indication: IMMUNOSUPPRESSION
     Route: 048
     Dates: start: 20180122

REACTIONS (4)
  - Treatment noncompliance [Unknown]
  - End stage renal disease [Recovered/Resolved]
  - Medication error [Unknown]
  - Pericarditis uraemic [Recovered/Resolved]

NARRATIVE: CASE EVENT DATE: 20180426
